FAERS Safety Report 6149710-9 (Version None)
Quarter: 2009Q2

REPORT INFORMATION
  Report Type: 
  Country: None (occurrence: None)
  Receive Date: 20090407
  Receipt Date: 20090407
  Transmission Date: 20091009
  Serious: Yes (Other)
  Sender: FDA-Public Use
  Company Number: None

PATIENT
  Age: 22 Year
  Sex: Female
  Weight: 64 kg

DRUGS (3)
  1. LACTATED RINGER'S [Suspect]
     Indication: ABDOMINAL PAIN
     Dosage: 500 ML BOLUS IV BOLUS
     Route: 040
     Dates: start: 20090326, end: 20090326
  2. LACTATED RINGER'S [Suspect]
     Indication: URINARY TRACT INFECTION
     Dosage: 500 ML BOLUS IV BOLUS
     Route: 040
     Dates: start: 20090326, end: 20090326
  3. LACTATED RINGER'S [Suspect]
     Dosage: 125 ML/HR IV DRIP
     Route: 041

REACTIONS (3)
  - COUGH [None]
  - DRUG EXPOSURE DURING PREGNANCY [None]
  - DYSPNOEA [None]
